FAERS Safety Report 24379023 (Version 1)
Quarter: 2024Q3

REPORT INFORMATION
  Report Type: Spontaneous
  Country: MX (occurrence: MX)
  Receive Date: 20240930
  Receipt Date: 20240930
  Transmission Date: 20241016
  Serious: Yes (Death)
  Sender: SANDOZ
  Company Number: MX-002147023-NVSC2024MX192022

PATIENT
  Age: 87 Year
  Sex: Female

DRUGS (1)
  1. EXELON [Suspect]
     Active Substance: RIVASTIGMINE TARTRATE
     Indication: Product used for unknown indication
     Dosage: 1 DOSAGE FORM, QD (EXTENDED RELEASE, 18 MILLIGRAM)
     Route: 062
     Dates: start: 20201201

REACTIONS (1)
  - Death [Fatal]

NARRATIVE: CASE EVENT DATE: 20240923
